FAERS Safety Report 13022159 (Version 1)
Quarter: 2016Q4

REPORT INFORMATION
  Report Type: Spontaneous
  Country: US (occurrence: US)
  Receive Date: 20161213
  Receipt Date: 20161213
  Transmission Date: 20170207
  Serious: No
  Sender: FDA-Public Use
  Company Number: US-PFIZER INC-2016564370

PATIENT
  Sex: Male

DRUGS (1)
  1. LYRICA [Suspect]
     Active Substance: PREGABALIN
     Dosage: 75 MG, 3X/DAY

REACTIONS (7)
  - Abdominal pain upper [Unknown]
  - Muscle spasms [Unknown]
  - Back pain [Unknown]
  - Chest discomfort [Unknown]
  - Anxiety [Unknown]
  - Condition aggravated [Unknown]
  - Withdrawal syndrome [Unknown]
